FAERS Safety Report 21212712 (Version 1)
Quarter: 2022Q3

REPORT INFORMATION
  Report Type: Spontaneous
  Country: US (occurrence: None)
  Receive Date: 20220812
  Receipt Date: 20220812
  Transmission Date: 20221026
  Serious: Yes (Hospitalization)
  Sender: FDA-Public Use
  Company Number: None

PATIENT
  Sex: Female

DRUGS (10)
  1. TACROLIMUS [Suspect]
     Active Substance: TACROLIMUS
     Indication: Renal transplant
     Dosage: 1 MG ORAL??TAKE 3 CAPSULES BY MOUTH TWICE DAILY
     Route: 048
     Dates: start: 20220308
  2. AUG BETAMET CRE [Concomitant]
  3. CARVEDILOL [Concomitant]
     Active Substance: CARVEDILOL
  4. CLONIDINE DIS [Concomitant]
  5. CYANOOBALAM INJ [Concomitant]
  6. LEVEMIR INJ FLEXTOUC [Concomitant]
  7. MULTIVITAMI TAB WOMEN [Concomitant]
  8. PEG-3350 SOL ELECTROL [Concomitant]
  9. TRULICITY INJ [Concomitant]
  10. VITAMIN D CAP [Concomitant]

REACTIONS (2)
  - Urinary tract infection [None]
  - Hydronephrosis [None]
